FAERS Safety Report 10501145 (Version 3)
Quarter: 2015Q1

REPORT INFORMATION
  Report Type: Spontaneous
  Country: DE (occurrence: DE)
  Receive Date: 20141007
  Receipt Date: 20150330
  Transmission Date: 20150720
  Serious: Yes (Hospitalization, Other)
  Sender: FDA-Public Use
  Company Number: DE-SUN PHARMACEUTICAL INDUSTRIES LTD-2014SUN02218

PATIENT
  Age: 77 Year
  Sex: Female
  Weight: 76 kg

DRUGS (11)
  1. GEMCITABINE SUN 200 MG PULVER ZUR HERSTELLUNG EINER INFUSIONSL?SUNG [Suspect]
     Active Substance: GEMCITABINE HYDROCHLORIDE
     Dosage: 1000 MG/M2, UNK
     Route: 042
     Dates: start: 20140512
  2. GEMCITABINE SUN 200 MG PULVER ZUR HERSTELLUNG EINER INFUSIONSL?SUNG [Suspect]
     Active Substance: GEMCITABINE HYDROCHLORIDE
     Dosage: 1000 MG/M2, UNK
     Route: 042
     Dates: start: 20140708
  3. GEMCITABINE SUN 200 MG PULVER ZUR HERSTELLUNG EINER INFUSIONSL?SUNG [Suspect]
     Active Substance: GEMCITABINE HYDROCHLORIDE
     Dosage: 1000 MG/M2, UNK
     Route: 042
     Dates: start: 20140715
  4. GEMCITABINE SUN 200 MG PULVER ZUR HERSTELLUNG EINER INFUSIONSL?SUNG [Suspect]
     Active Substance: GEMCITABINE HYDROCHLORIDE
     Indication: OVARIAN CANCER
     Dosage: 1000 MG/M2
     Route: 042
     Dates: start: 20140303
  5. GEMCITABINE SUN 200 MG PULVER ZUR HERSTELLUNG EINER INFUSIONSL?SUNG [Suspect]
     Active Substance: GEMCITABINE HYDROCHLORIDE
     Dosage: 1000 MG/M2, UNK
     Route: 042
     Dates: start: 20140616
  6. GEMCITABINE SUN 200 MG PULVER ZUR HERSTELLUNG EINER INFUSIONSL?SUNG [Suspect]
     Active Substance: GEMCITABINE HYDROCHLORIDE
     Dosage: 1000 MG/M2, UNK
     Route: 042
     Dates: start: 20140331
  7. GEMCITABINE SUN 200 MG PULVER ZUR HERSTELLUNG EINER INFUSIONSL?SUNG [Suspect]
     Active Substance: GEMCITABINE HYDROCHLORIDE
     Dosage: 1000 MG/M2, UNK
     Route: 042
     Dates: start: 20140729, end: 20140730
  8. GEMCITABINE SUN 200 MG PULVER ZUR HERSTELLUNG EINER INFUSIONSL?SUNG [Suspect]
     Active Substance: GEMCITABINE HYDROCHLORIDE
     Dosage: 1000 MG/M2, UNK
     Route: 042
     Dates: start: 20140519
  9. GEMCITABINE SUN 200 MG PULVER ZUR HERSTELLUNG EINER INFUSIONSL?SUNG [Suspect]
     Active Substance: GEMCITABINE HYDROCHLORIDE
     Dosage: 1000 MG/M2, UNK
     Route: 042
     Dates: start: 20140624
  10. GEMCITABINE SUN 200 MG PULVER ZUR HERSTELLUNG EINER INFUSIONSL?SUNG [Suspect]
     Active Substance: GEMCITABINE HYDROCHLORIDE
     Dosage: 1000 MG/M2, UNK
     Route: 042
     Dates: start: 20140310
  11. GEMCITABINE SUN 200 MG PULVER ZUR HERSTELLUNG EINER INFUSIONSL?SUNG [Suspect]
     Active Substance: GEMCITABINE HYDROCHLORIDE
     Dosage: 1000 MG/M2, UNK
     Route: 042
     Dates: start: 20140324

REACTIONS (10)
  - Bile duct stone [Recovered/Resolved]
  - Abdominal pain [Unknown]
  - Sepsis [Recovered/Resolved]
  - Cholangitis [Unknown]
  - Vomiting [Unknown]
  - Nausea [Unknown]
  - Cholecystitis [Unknown]
  - Anaemia [Unknown]
  - Cholelithiasis [Recovered/Resolved]
  - Leukopenia [Unknown]

NARRATIVE: CASE EVENT DATE: 20140310
